FAERS Safety Report 12743582 (Version 1)
Quarter: 2016Q3

REPORT INFORMATION
  Report Type: Spontaneous
  Country: GB (occurrence: GB)
  Receive Date: 20160914
  Receipt Date: 20160914
  Transmission Date: 20161109
  Serious: Yes (Life-Threatening, Hospitalization, Disabling)
  Sender: FDA-Public Use
  Company Number: GB-FRESENIUS KABI-FK201606492

PATIENT
  Age: 50 Year
  Sex: Male
  Weight: 81 kg

DRUGS (9)
  1. CYCLIZINE [Concomitant]
     Active Substance: CYCLIZINE
  2. CISPLATIN (MANUFACTURER UNKNOWN) [Suspect]
     Active Substance: CISPLATIN
     Indication: TESTICULAR CANCER METASTATIC
     Route: 042
     Dates: start: 201607
  3. ETOPOSIDE. [Concomitant]
     Active Substance: ETOPOSIDE
  4. APREPITANT. [Concomitant]
     Active Substance: APREPITANT
  5. FILGRASTIM [Concomitant]
     Active Substance: FILGRASTIM
  6. AMLODIPINE [Concomitant]
     Active Substance: AMLODIPINE BESYLATE
  7. DEXAMETHASONE. [Concomitant]
     Active Substance: DEXAMETHASONE
  8. ONDANSETRON [Concomitant]
     Active Substance: ONDANSETRON
  9. CISPLATIN (MANUFACTURER UNKNOWN) [Suspect]
     Active Substance: CISPLATIN
     Route: 042
     Dates: start: 20160801, end: 20160805

REACTIONS (3)
  - Mesenteric artery thrombosis [Unknown]
  - Abdominal pain [Unknown]
  - Intestinal infarction [Recovered/Resolved with Sequelae]

NARRATIVE: CASE EVENT DATE: 20160808
